FAERS Safety Report 18053757 (Version 1)
Quarter: 2020Q3

REPORT INFORMATION
  Report Type: Spontaneous
  Country: US (occurrence: US)
  Receive Date: 20200721
  Receipt Date: 20200721
  Transmission Date: 20201103
  Serious: Yes (Hospitalization)
  Sender: FDA-Public Use
  Company Number: None

PATIENT
  Age: 83 Year
  Sex: Female

DRUGS (18)
  1. EZETIMBE [Concomitant]
     Active Substance: EZETIMIBE
  2. ATORVASTATIN [Concomitant]
     Active Substance: ATORVASTATIN
  3. DILTIAEM [Concomitant]
  4. STIOLTO RESPIMAT [Concomitant]
     Active Substance: OLODATEROL HYDROCHLORIDE\TIOTROPIUM BROMIDE MONOHYDRATE
  5. HUMIRA [Suspect]
     Active Substance: ADALIMUMAB
     Indication: PSORIASIS
     Route: 058
     Dates: start: 20161210
  6. FLECAINIDE [Concomitant]
     Active Substance: FLECAINIDE
  7. TRIAMCINOLON CR [Concomitant]
  8. VITAMIN D3 [Concomitant]
     Active Substance: CHOLECALCIFEROL
  9. BIOTIN [Concomitant]
     Active Substance: BIOTIN
  10. CETIRIZINE [Concomitant]
     Active Substance: CETIRIZINE HYDROCHLORIDE
  11. CLOBETASOL [Concomitant]
     Active Substance: CLOBETASOL
  12. ELIQUIS [Concomitant]
     Active Substance: APIXABAN
  13. IRON [Concomitant]
     Active Substance: IRON
  14. ASPIRIN. [Concomitant]
     Active Substance: ASPIRIN
  15. BETAMETH [Concomitant]
  16. LOSARTAN. [Concomitant]
     Active Substance: LOSARTAN
  17. MULTIVITAMIN [Concomitant]
     Active Substance: VITAMINS
  18. SYMBICORT [Concomitant]
     Active Substance: BUDESONIDE\FORMOTEROL FUMARATE DIHYDRATE

REACTIONS (1)
  - Cardiac disorder [None]

NARRATIVE: CASE EVENT DATE: 20200613
